FAERS Safety Report 8974546 (Version 2)
Quarter: 2012Q4

REPORT INFORMATION
  Report Type: 
  Country: JP (occurrence: JP)
  Receive Date: 20121220
  Receipt Date: 20121228
  Transmission Date: 20130627
  Serious: Yes (Death, Other)
  Sender: FDA-Public Use
  Company Number: JP-BAYER-2012-114557

PATIENT
  Age: 71 Year
  Sex: Male

DRUGS (7)
  1. NEXAVAR [Suspect]
     Indication: CARCINOMA HEPATOCELLULAR
     Dosage: 400 mg, QD
     Route: 048
     Dates: start: 20121010, end: 20121128
  2. MAGNESIUM OXIDE [Concomitant]
     Dosage: UNK
     Route: 048
  3. URSO [Concomitant]
     Dosage: UNK
     Route: 048
  4. LIVACT [Concomitant]
     Dosage: UNK
     Route: 048
  5. ADALAT CR [Concomitant]
     Dosage: UNK
     Route: 048
  6. PARIET [Concomitant]
     Dosage: UNK
     Route: 048
  7. HYPEN [Concomitant]
     Dosage: UNK
     Route: 048

REACTIONS (6)
  - Hepatic cancer [Fatal]
  - Ascites [Not Recovered/Not Resolved]
  - Rash [Recovered/Resolved]
  - Dysgeusia [Not Recovered/Not Resolved]
  - Decreased appetite [Not Recovered/Not Resolved]
  - Hepatocellular carcinoma [None]
